FAERS Safety Report 7001690-X (Version None)
Quarter: 2010Q3

REPORT INFORMATION
  Report Type: 
  Country: None (occurrence: None)
  Receive Date: 20100920
  Receipt Date: 20100910
  Transmission Date: 20110219
  Serious: Yes (Other)
  Sender: FDA-Public Use
  Company Number: US-PFIZER INC-2010072317

PATIENT
  Sex: Female

DRUGS (1)
  1. SUTENT [Suspect]
     Indication: RENAL CELL CARCINOMA
     Dosage: 25 MG, 1X/DAY, 4 WEEKS ON AND 2 WEEKS OFF
     Route: 048
     Dates: start: 20081212, end: 20100511

REACTIONS (6)
  - COAGULOPATHY [None]
  - DISEASE PROGRESSION [None]
  - HAEMODIALYSIS [None]
  - HAEMORRHAGE [None]
  - RENAL CELL CARCINOMA [None]
  - THROMBOCYTOPENIA [None]
